FAERS Safety Report 5040631-1 (Version None)
Quarter: 2006Q2

REPORT INFORMATION
  Report Type: 
  Country: None (occurrence: None)
  Receive Date: 20060628
  Receipt Date: 20060510
  Transmission Date: 20061013
  Serious: Yes (Death, Hospitalization)
  Sender: FDA-Public Use
  Company Number: 2006001013

PATIENT
  Age: 75 Year
  Sex: Male

DRUGS (6)
  1. TARCEVA [Suspect]
     Indication: NON-SMALL CELL LUNG CANCER
     Dosage: 150 MG (QD)
     Dates: start: 20060124, end: 20060401
  2. DURAGESIC-100 [Concomitant]
  3. MORPHINE SULFATE [Concomitant]
  4. TRANXENE [Concomitant]
  5. KETOPROFEN [Concomitant]
  6. AMIODARONE (AMIODARONE) [Concomitant]

REACTIONS (6)
  - CEREBROVASCULAR ACCIDENT [None]
  - CONFUSIONAL STATE [None]
  - DEEP VEIN THROMBOSIS [None]
  - GENERAL PHYSICAL HEALTH DETERIORATION [None]
  - TRANSIENT ISCHAEMIC ATTACK [None]
  - VENOUS THROMBOSIS LIMB [None]
